FAERS Safety Report 7358649-2 (Version None)
Quarter: 2011Q1

REPORT INFORMATION
  Report Type: 
  Country: None (occurrence: None)
  Receive Date: 20110317
  Receipt Date: 20110304
  Transmission Date: 20110831
  Serious: Yes (Other)
  Sender: FDA-Public Use
  Company Number: PHHY2011GB18233

PATIENT
  Age: 50 Year
  Sex: Female
  Weight: 99 kg

DRUGS (5)
  1. AMOXICILLIN [Concomitant]
     Dosage: UNK
     Dates: start: 20101223
  2. ESTRADIOL [Concomitant]
     Dosage: UNK
     Dates: start: 20100809
  3. BENDROFLUMETHIAZIDE [Concomitant]
     Dosage: UNK
     Dates: start: 20101005
  4. SIMVASTATIN [Suspect]
     Dosage: 2 DF, UNK
     Dates: start: 20110201
  5. AMLODIPINE [Concomitant]
     Dosage: UNK
     Dates: start: 20110111

REACTIONS (3)
  - PRURITUS [None]
  - OEDEMA PERIPHERAL [None]
  - ERYTHEMA [None]
